FAERS Safety Report 10305805 (Version 1)
Quarter: 2014Q3

REPORT INFORMATION
  Report Type: Spontaneous
  Country: US (occurrence: None)
  Receive Date: 20140711
  Receipt Date: 20140711
  Transmission Date: 20150326
  Serious: Yes (Life-Threatening, Other)
  Sender: FDA-Public Use
  Company Number: None

PATIENT
  Age: 52 Year
  Sex: Female
  Weight: 63.5 kg

DRUGS (1)
  1. EPIPEN [Suspect]
     Active Substance: EPINEPHRINE
     Dosage: AUTOINJECTOR ONCE INTO THE MUSCLE
     Route: 030

REACTIONS (2)
  - Dyspnoea [None]
  - Hypoaesthesia eye [None]

NARRATIVE: CASE EVENT DATE: 20100908
